FAERS Safety Report 8451198-X (Version None)
Quarter: 2012Q2

REPORT INFORMATION
  Report Type: 
  Country: None (occurrence: None)
  Receive Date: 20120620
  Receipt Date: 20120402
  Transmission Date: 20120825
  Serious: No
  Sender: FDA-Public Use
  Company Number: US-VERTEX PHARMACEUTICALS INC.-AE-2011-004262

PATIENT
  Sex: Male
  Weight: 61.29 kg

DRUGS (3)
  1. RIBASPHERE [Concomitant]
     Indication: HEPATITIS C
     Route: 048
     Dates: start: 20111014, end: 20120330
  2. INCIVEK [Suspect]
     Indication: HEPATITIS C
     Route: 048
     Dates: start: 20111014, end: 20120106
  3. PEGASYS [Concomitant]
     Indication: HEPATITIS C
     Route: 058
     Dates: start: 20111014, end: 20120330

REACTIONS (7)
  - HAEMORRHOIDS [None]
  - ANORECTAL DISCOMFORT [None]
  - FORMICATION [None]
  - STOMATITIS [None]
  - RASH PRURITIC [None]
  - DIARRHOEA [None]
  - ANAL PRURITUS [None]
